FAERS Safety Report 7975453-2 (Version None)
Quarter: 2011Q4

REPORT INFORMATION
  Report Type: 
  Country: None (occurrence: None)
  Receive Date: 20111213
  Receipt Date: 20110928
  Transmission Date: 20120403
  Serious: No
  Sender: FDA-Public Use
  Company Number: US-AMGEN-USASP2011050248

PATIENT
  Age: 49 Year
  Sex: Female

DRUGS (1)
  1. ENBREL [Suspect]
     Indication: ARTHRITIS REACTIVE
     Dosage: 50 MG, QWK
     Dates: start: 20040901, end: 20110920

REACTIONS (5)
  - FATIGUE [None]
  - CELLULITIS [None]
  - ARTHRALGIA [None]
  - THERAPEUTIC RESPONSE DECREASED [None]
  - C-REACTIVE PROTEIN INCREASED [None]
